FAERS Safety Report 13433966 (Version 2)
Quarter: 2017Q2

REPORT INFORMATION
  Report Type: Spontaneous
  Country: IT (occurrence: IT)
  Receive Date: 20170413
  Receipt Date: 20170421
  Transmission Date: 20170830
  Serious: Yes (Hospitalization)
  Sender: FDA-Public Use
  Company Number: IT-AUROBINDO-AUR-APL-2017-32416

PATIENT
  Age: 33 Year
  Sex: Female

DRUGS (2)
  1. VICKS MEDINAIT                     /01062901/ [Concomitant]
     Indication: PRODUCT USED FOR UNKNOWN INDICATION
     Route: 048
  2. PARACETAMOL [Suspect]
     Active Substance: ACETAMINOPHEN
     Indication: PRODUCT USED FOR UNKNOWN INDICATION
     Dosage: 1000 MG, TOTAL
     Route: 048

REACTIONS (6)
  - Agitation [Unknown]
  - Tachycardia [Unknown]
  - Drug use disorder [Unknown]
  - Overdose [Unknown]
  - Aggression [Unknown]
  - Sopor [Unknown]

NARRATIVE: CASE EVENT DATE: 20170219
